FAERS Safety Report 12750929 (Version 7)
Quarter: 2021Q3

REPORT INFORMATION
  Report Type: Report from Study
  Country: US (occurrence: US)
  Receive Date: 20160915
  Receipt Date: 20210809
  Transmission Date: 20211014
  Serious: Yes (Hospitalization, Other)
  Sender: FDA-Public Use
  Company Number: US-ASTELLAS-2016US020570

PATIENT
  Age: 69 Year
  Sex: Male

DRUGS (1)
  1. ENZALUTAMIDE [Suspect]
     Active Substance: ENZALUTAMIDE
     Indication: BONE CANCER METASTATIC
     Route: 048
     Dates: start: 20151205, end: 20190811

REACTIONS (7)
  - Amnesia [Unknown]
  - Product packaging quantity issue [Unknown]
  - Product use complaint [Unknown]
  - Wrong technique in product usage process [Not Recovered/Not Resolved]
  - Pneumonia [Unknown]
  - Headache [Unknown]
  - Urinary retention [Unknown]

NARRATIVE: CASE EVENT DATE: 201807
